FAERS Safety Report 5492060-4 (Version None)
Quarter: 2007Q4

REPORT INFORMATION
  Report Type: 
  Country: None (occurrence: None)
  Receive Date: 20071015
  Receipt Date: 20070708
  Transmission Date: 20080405
  Serious: No
  Sender: FDA-Public Use
  Company Number: 2007SP002486

PATIENT
  Age: 71 Year
  Sex: Female
  Weight: 63.5036 kg

DRUGS (4)
  1. LUNESTA [Suspect]
     Indication: POOR QUALITY SLEEP
     Dosage: 3 MG; ORAL; 3 MG; HS; ORAL
     Route: 048
     Dates: start: 20050101
  2. SIMVASTATIN [Concomitant]
  3. AVAPRO [Concomitant]
  4. CYMBALTA [Concomitant]

REACTIONS (3)
  - DRUG EFFECT DECREASED [None]
  - DYSGEUSIA [None]
  - FEELING ABNORMAL [None]
